FAERS Safety Report 20918007 (Version 1)
Quarter: 2022Q2

REPORT INFORMATION
  Report Type: Spontaneous
  Country: US (occurrence: US)
  Receive Date: 20220606
  Receipt Date: 20220606
  Transmission Date: 20220720
  Serious: No
  Sender: FDA-Public Use
  Company Number: US-BRISTOL-MYERS SQUIBB COMPANY-2022-052527

PATIENT
  Age: 82 Year
  Sex: Female
  Weight: 48.53 kg

DRUGS (1)
  1. REVLIMID [Suspect]
     Active Substance: LENALIDOMIDE
     Indication: Plasma cell myeloma
     Dosage: D 1- 21 Q 28 DAYS?DRUG ONGOING
     Route: 048
     Dates: start: 20191105

REACTIONS (1)
  - Fatigue [Unknown]
